FAERS Safety Report 4560702-3 (Version None)
Quarter: 2005Q1

REPORT INFORMATION
  Report Type: 
  Country: None (occurrence: None)
  Receive Date: 20050126
  Receipt Date: 20050114
  Transmission Date: 20050727
  Serious: Yes (Other)
  Sender: FDA-Public Use
  Company Number: US-JNJFOC-20050104231

PATIENT
  Sex: Female

DRUGS (13)
  1. REMICADE [Suspect]
     Indication: CROHN'S DISEASE
     Route: 042
  2. ESTRADIOL [Concomitant]
  3. ASPIRIN [Concomitant]
  4. EFFEXOR [Concomitant]
  5. LASIX [Concomitant]
  6. CELEXA [Concomitant]
  7. TOPROL-XL [Concomitant]
  8. PRIMIDONE [Concomitant]
     Dosage: 1/2 AM AND 1 HOUR OF SLEEP
  9. SERAX [Concomitant]
     Dosage: 1-2 AT HOUR OF SLEEP
  10. LISINOPRIL [Concomitant]
  11. FLEXERIL [Concomitant]
  12. ULTRAM [Concomitant]
     Dosage: 1-2 EVERY 4-6 HOURS
  13. CIPRO [Concomitant]

REACTIONS (1)
  - MITRAL VALVE PROLAPSE [None]
